FAERS Safety Report 5000194-3 (Version None)
Quarter: 2006Q1

REPORT INFORMATION
  Report Type: 
  Country: None (occurrence: None)
  Receive Date: 20060315
  Receipt Date: 20060215
  Transmission Date: 20060701
  Serious: Yes (Other)
  Sender: FDA-Public Use
  Company Number: 436936

PATIENT
  Age: 44 Year
  Sex: Female

DRUGS (4)
  1. BONIVA [Suspect]
     Dosage: ORAL
     Route: 048
     Dates: start: 20060201
  2. PAXIL [Concomitant]
  3. LOTRONEX [Concomitant]
  4. PREDNISONE TAB [Concomitant]

REACTIONS (2)
  - GALACTORRHOEA [None]
  - LACTATION DISORDER [None]
